FAERS Safety Report 8617001-X (Version None)
Quarter: 2012Q3

REPORT INFORMATION
  Report Type: 
  Country: None (occurrence: None)
  Receive Date: 20120823
  Receipt Date: 20120814
  Transmission Date: 20120928
  Serious: No
  Sender: FDA-Public Use
  Company Number: US-009507513-1208USA007019

PATIENT

DRUGS (1)
  1. NUVARING [Suspect]
     Dosage: 3 WEEK IN 1 WEEK OUT
     Route: 067
     Dates: start: 20110801, end: 20120601

REACTIONS (1)
  - INAPPROPRIATE SCHEDULE OF DRUG ADMINISTRATION [None]
